FAERS Safety Report 20335364 (Version 1)
Quarter: 2022Q1

REPORT INFORMATION
  Report Type: Spontaneous
  Country: CA (occurrence: CA)
  Receive Date: 20220114
  Receipt Date: 20220114
  Transmission Date: 20220423
  Serious: Yes (Other)
  Sender: FDA-Public Use
  Company Number: CA-Covis Pharma GmbH-2022COV00147

PATIENT

DRUGS (3)
  1. RILUZOLE [Suspect]
     Active Substance: RILUZOLE
     Indication: Myelopathy
     Dosage: 50 MG TWICE A DAY FOR 14 DAYS BEFORE SURGERY AND THEN FOR 28 DAYS AFTER SURGERY
     Route: 048
  2. RILUZOLE [Suspect]
     Active Substance: RILUZOLE
     Dosage: 50 MG TWICE A DAY FOR 14 DAYS BEFORE SURGERY AND THEN FOR 28 DAYS AFTER SURGERY
     Route: 048
  3. PLACEBO [Suspect]
     Active Substance: UNSPECIFIED INGREDIENT
     Indication: Myelopathy
     Route: 067

REACTIONS (22)
  - Myelopathy [Unknown]
  - Wound complication [Unknown]
  - Osteoarthritis [Unknown]
  - Neck pain [Recovered/Resolved]
  - Paraesthesia [Unknown]
  - Dysphagia [Unknown]
  - Pseudarthrosis [Unknown]
  - Device failure [Unknown]
  - Cervical spinal cord paralysis [Unknown]
  - Pain [Recovered/Resolved]
  - Adjacent segment degeneration [Unknown]
  - Dural tear [Unknown]
  - Haematoma [Unknown]
  - Wound infection [Unknown]
  - Dysphonia [Unknown]
  - Arrhythmia [Unknown]
  - Embolism venous [Unknown]
  - Diarrhoea [Unknown]
  - Hepatic enzyme increased [Unknown]
  - Nausea [Unknown]
  - Dizziness [Unknown]
  - Abdominal pain [Unknown]
